FAERS Safety Report 9303665 (Version 1)
Quarter: 2013Q2

REPORT INFORMATION
  Report Type: Spontaneous
  Country: US (occurrence: None)
  Receive Date: 20130516
  Receipt Date: 20130516
  Transmission Date: 20140414
  Serious: Yes (Hospitalization, Other)
  Sender: FDA-Public Use
  Company Number: SYM-2013-03770

PATIENT
  Age: 47 Year
  Sex: Female

DRUGS (13)
  1. INFUMORPH [Suspect]
     Indication: LUMBAR RADICULOPATHY
     Route: 037
  2. INFUMORPH [Suspect]
     Route: 037
  3. INFUMORPH [Suspect]
     Route: 037
  4. INFUMORPH [Suspect]
     Indication: LUMBAR RADICULOPATHY
     Route: 037
  5. BACLOFEN [Suspect]
  6. BACLOFEN [Suspect]
  7. BACLOFEN [Suspect]
  8. BACLOFEN [Suspect]
     Indication: LUMBAR RADICULOPATHY
  9. FENTANYL [Suspect]
  10. FENTANYL [Suspect]
  11. FENTANYL [Suspect]
  12. FENTANYL [Suspect]
     Indication: LUMBAR RADICULOPATHY
  13. UNSPECIFIED INGREDIENT [Suspect]

REACTIONS (4)
  - Anxiety [None]
  - Mental status changes [None]
  - Unresponsive to stimuli [None]
  - Hyperhidrosis [None]
